FAERS Safety Report 7050358-2 (Version None)
Quarter: 2010Q4

REPORT INFORMATION
  Report Type: 
  Country: None (occurrence: None)
  Receive Date: 20101013
  Receipt Date: 20101008
  Transmission Date: 20110411
  Serious: Yes (Other)
  Sender: FDA-Public Use
  Company Number: CL-249-2010

PATIENT
  Age: 19 Year
  Sex: Male
  Weight: 90 kg

DRUGS (23)
  1. CIPROFLOXACIN [Suspect]
     Indication: ACINETOBACTER INFECTION
     Dosage: 400 MG UNK INTRAVENOUS
     Route: 042
     Dates: start: 20100731, end: 20100803
  2. PROPOFOL UNK [Suspect]
     Indication: SEDATION
     Dates: start: 20100725, end: 20100805
  3. PROPOFOL [Concomitant]
  4. ALFENTANIL [Concomitant]
  5. ASCORBIC ACID [Concomitant]
  6. ATRACURIUM BESYLATE [Concomitant]
  7. CHLORHEXIDINE GLUCONATE [Concomitant]
  8. DALTEPARIN SODIUM [Concomitant]
  9. DOCUSATE SODIUM [Concomitant]
  10. FUROSEMIDE [Concomitant]
  11. HEPARIN [Concomitant]
  12. LANSOPRAZOLE [Concomitant]
  13. METARAMINOL BITARTRATE [Concomitant]
  14. MIDAZOLAM [Concomitant]
  15. MOVICOL (MACROGOL 3350, POLYETHYLENE GLYCOL 3350, POTASSIUM CHLORIDE, [Concomitant]
  16. NICOTINE [Concomitant]
  17. PARACETAMOL [Concomitant]
  18. PIPERACILLIN SODIUM [Concomitant]
  19. RANITIDINE [Concomitant]
  20. SPIRONOLACTONE [Concomitant]
  21. TAZOBACTAM [Concomitant]
  22. TEICOPLANIN [Concomitant]
  23. ZINC [Concomitant]

REACTIONS (2)
  - PROPOFOL INFUSION SYNDROME [None]
  - RHABDOMYOLYSIS [None]
